FAERS Safety Report 6317132-3 (Version None)
Quarter: 2009Q3

REPORT INFORMATION
  Report Type: 
  Country: None (occurrence: None)
  Receive Date: 20090820
  Receipt Date: 20090629
  Transmission Date: 20100115
  Serious: No
  Sender: FDA-Public Use
  Company Number: US-PFIZER INC-2009222327

PATIENT
  Sex: Male

DRUGS (2)
  1. VIAGRA [Suspect]
  2. CIALIS [Suspect]

REACTIONS (1)
  - CONFUSIONAL STATE [None]
